FAERS Safety Report 4938546-X (Version None)
Quarter: 2006Q1

REPORT INFORMATION
  Report Type: 
  Country: None (occurrence: None)
  Receive Date: 20060306
  Receipt Date: 20060217
  Transmission Date: 20060701
  Serious: Yes (Death, Hospitalization)
  Sender: FDA-Public Use
  Company Number: US200601004172

PATIENT
  Age: 66 Year
  Sex: Female
  Weight: 70.5 kg

DRUGS (15)
  1. PEMETREXED (PEMETREXED) VIAL [Suspect]
     Indication: LEIOMYOSARCOMA METASTATIC
     Dosage: 525 MG OTHER INTRAVENOUS
     Route: 042
     Dates: start: 20051115
  2. DOCETAXEL (DOCETAXEL) [Suspect]
     Indication: LEIOMYOSARCOMA METASTATIC
     Dosage: SEE IMAGE
     Route: 042
     Dates: start: 20051115
  3. DOCETAXEL (DOCETAXEL) [Suspect]
     Indication: LEIOMYOSARCOMA METASTATIC
     Dosage: SEE IMAGE
     Route: 042
     Dates: start: 20060112
  4. IBUPROFEN [Concomitant]
  5. MORPHINE SULFATE(MORPHINE SULFATE UNKNOWN FORMULATION) [Concomitant]
  6. XANAX [Concomitant]
  7. UNISOM [Concomitant]
  8. DRIXORAL [Concomitant]
  9. ATACAND [Concomitant]
  10. ZOFRAN [Concomitant]
  11. TIGAN [Concomitant]
  12. DARBEPOETIN ALFA (DARBEPOETIN ALFA) [Concomitant]
  13. NEOSPORIN (BACITRACIN ZINC, NEOMYCIN SULFATE, POLYMYXIN B SULFATE) [Concomitant]
  14. CLIMARA [Concomitant]
  15. VITAMIN B12(CYANCOBALAMIN) [Concomitant]

REACTIONS (21)
  - ALVEOLITIS [None]
  - BRONCHOPNEUMONIA [None]
  - DEHYDRATION [None]
  - DIFFUSE ALVEOLAR DAMAGE [None]
  - DISEASE PROGRESSION [None]
  - FATIGUE [None]
  - GENERALISED OEDEMA [None]
  - HAEMOGLOBIN DECREASED [None]
  - HEPATIC CONGESTION [None]
  - INFECTION [None]
  - LARYNGEAL ULCERATION [None]
  - LETHARGY [None]
  - LOWER RESPIRATORY TRACT INFLAMMATION [None]
  - NEPHROPATHY [None]
  - OCCULT BLOOD POSITIVE [None]
  - OEDEMA [None]
  - PLEURAL EFFUSION [None]
  - RENAL FAILURE ACUTE [None]
  - RESPIRATORY FAILURE [None]
  - SPLEEN CONGESTION [None]
  - VIRAL INFECTION [None]
